FAERS Safety Report 6218382-7 (Version None)
Quarter: 2009Q2

REPORT INFORMATION
  Report Type: 
  Country: None (occurrence: None)
  Receive Date: 20090608
  Receipt Date: 20090529
  Transmission Date: 20091009
  Serious: Yes (Other)
  Sender: FDA-Public Use
  Company Number: A0788920A

PATIENT
  Age: 36 Year
  Sex: Female

DRUGS (3)
  1. COMBIVIR [Suspect]
     Indication: HIV INFECTION
     Dosage: 900MG PER DAY
     Route: 048
     Dates: start: 20060201
  2. EFAVIRENZ [Suspect]
     Indication: HIV INFECTION
     Dosage: 600MG PER DAY
     Route: 048
     Dates: start: 20060201
  3. VIRAMUNE [Suspect]
     Indication: HIV INFECTION
     Dosage: 400MG PER DAY
     Route: 048
     Dates: start: 20081009

REACTIONS (2)
  - DRUG EXPOSURE DURING PREGNANCY [None]
  - STILLBIRTH [None]
